FAERS Safety Report 6371183-1 (Version None)
Quarter: 2009Q3

REPORT INFORMATION
  Report Type: 
  Country: None (occurrence: None)
  Receive Date: 20090923
  Receipt Date: 20070507
  Transmission Date: 20100115
  Serious: Yes (Other)
  Sender: FDA-Public Use
  Company Number: US-ASTRAZENECA-2006UW27540

PATIENT
  Age: 610 Month
  Sex: Female
  Weight: 72.6 kg

DRUGS (11)
  1. SEROQUEL [Suspect]
     Indication: DEPRESSION
     Route: 048
     Dates: start: 19990101
  2. SEROQUEL [Suspect]
     Indication: AFFECTIVE DISORDER
     Route: 048
     Dates: start: 19990101
  3. SEROQUEL [Suspect]
     Dosage: 25 MG -100 MG BID
     Route: 048
     Dates: start: 20030224
  4. SEROQUEL [Suspect]
     Dosage: 25 MG -100 MG BID
     Route: 048
     Dates: start: 20030224
  5. SEROQUEL [Suspect]
     Route: 048
     Dates: start: 20060218
  6. SEROQUEL [Suspect]
     Route: 048
     Dates: start: 20060218
  7. PREDNISOLONE [Concomitant]
     Dates: end: 20031208
  8. ACYCLOVIR [Concomitant]
     Dates: start: 20040209
  9. ATENOLOL [Concomitant]
     Dates: start: 20030224
  10. LIPITOR [Concomitant]
     Route: 048
     Dates: start: 19980604
  11. PAXIL [Concomitant]
     Route: 048
     Dates: start: 20000214

REACTIONS (3)
  - DIABETES MELLITUS [None]
  - DIABETES MELLITUS INADEQUATE CONTROL [None]
  - HYPERGLYCAEMIA [None]
